FAERS Safety Report 20832894 (Version 1)
Quarter: 2022Q2

REPORT INFORMATION
  Report Type: 
  Country: None (occurrence: None)
  Receive Date: 20220516
  Receipt Date: 20220516
  Transmission Date: 20220720
  Serious: No
  Sender: FDA-Public Use
  Company Number: DK-ROCHE-3003621

PATIENT
  Weight: 47 kg

DRUGS (12)
  1. ATEZOLIZUMAB [Suspect]
     Active Substance: ATEZOLIZUMAB
     Dosage: DATE OF MOST RECENT DOSE OF ATEZOLIZUMAB PRIOR TO AE ONSET WAS 28/DEC/2021, DOSE OF LAST ATEZOLIZUMA
     Dates: start: 20211214
  2. PACLITAXEL [Suspect]
     Active Substance: PACLITAXEL
     Dosage: DATE OF MOST RECENT DOSE OF PACLITAXEL PRIOR TO AE ONSET WAS 113 MG AND DATE OF MOST RECENT DOSE OF
     Dates: start: 20211214
  3. PREDNISOLONE [Concomitant]
     Active Substance: PREDNISOLONE
     Dosage: 100 MG/D
  4. TORSEMIDE [Concomitant]
     Active Substance: TORSEMIDE
  5. HYDROMORPHONE [Concomitant]
     Active Substance: HYDROMORPHONE
  6. PIRITRAMIDE [Concomitant]
     Active Substance: PIRITRAMIDE
  7. LORAZEPAM [Concomitant]
     Active Substance: LORAZEPAM
  8. SODIUM PICOSULFATE [Concomitant]
     Active Substance: SODIUM PICOSULFATE
  9. PANTOPRAZOLE [Concomitant]
     Active Substance: PANTOPRAZOLE
  10. KEPPRA [Concomitant]
     Active Substance: LEVETIRACETAM
     Dates: start: 20220114
  11. MIDAZOLAM [Concomitant]
     Active Substance: MIDAZOLAM
     Dates: start: 20220114, end: 20220114
  12. AMITRIPTYLINE [Concomitant]
     Active Substance: AMITRIPTYLINE

REACTIONS (1)
  - Posterior reversible encephalopathy syndrome [None]

NARRATIVE: CASE EVENT DATE: 20220114
